FAERS Safety Report 10260867 (Version 3)
Quarter: 2014Q3

REPORT INFORMATION
  Report Type: Spontaneous
  Country: JP (occurrence: JP)
  Receive Date: 20140626
  Receipt Date: 20140922
  Transmission Date: 20150326
  Serious: Yes (Other)
  Sender: FDA-Public Use
  Company Number: JP-009507513-1406JPN010410

PATIENT
  Age: 55 Year
  Sex: Male
  Weight: 82 kg

DRUGS (4)
  1. ROCURONIUM BROMIDE. [Suspect]
     Active Substance: ROCURONIUM BROMIDE
     Indication: NEUROMUSCULAR BLOCKING THERAPY
     Dosage: 50 MG, (DIVIDED DOSE FREQUENCY UNKNOWN )
     Route: 042
  2. PROPOFOL. [Concomitant]
     Active Substance: PROPOFOL
     Indication: INDUCTION OF ANAESTHESIA
     Dosage: 120 MG,QD(DIVIDED DOSE FREQUENCY UNKNOWN)
     Route: 042
  3. SEVOFLURANE. [Concomitant]
     Active Substance: SEVOFLURANE
     Indication: ANAESTHESIA
     Dosage: 5%,DAILY DOSE UNKNOWN;ROUTE REPORTED AS INHALATION
     Route: 055
  4. FENTANYL. [Concomitant]
     Active Substance: FENTANYL
     Indication: INDUCTION OF ANAESTHESIA
     Dosage: 100 MICROGRAM ,(DIVIDED DOSE FREQUENCY UNKNOWN)
     Route: 042

REACTIONS (2)
  - Respiratory failure [Recovered/Resolved]
  - Endotracheal intubation [Recovered/Resolved]
